FAERS Safety Report 8278411 (Version 3)
Quarter: 2014Q1

REPORT INFORMATION
  Report Type: Spontaneous
  Country: US (occurrence: None)
  Receive Date: 20111201
  Receipt Date: 20140122
  Transmission Date: 20141002
  Serious: Yes (Death)
  Sender: FDA-Public Use
  Company Number: UCM201111-000076

PATIENT
  Age: 40 Year
  Sex: Male

DRUGS (3)
  1. TOPIRAMATE [Suspect]
     Indication: CONVULSION
  2. DIVALPROEX SODIUM [Suspect]
     Indication: CONVULSION
  3. ROSIGLITAZONE/ METFORMIN [Suspect]
     Indication: DIABETES MELLITUS

REACTIONS (12)
  - Supraventricular tachycardia [None]
  - Myocardial infarction [None]
  - Hyperthermia [None]
  - Cardiac arrest [None]
  - Respiratory rate increased [None]
  - Unresponsive to stimuli [None]
  - Dry skin [None]
  - Myocardial ischaemia [None]
  - Blood pressure decreased [None]
  - Bundle branch block right [None]
  - Metabolic acidosis [None]
  - Renal failure acute [None]
